FAERS Safety Report 7069181-8 (Version None)
Quarter: 2010Q4

REPORT INFORMATION
  Report Type: 
  Country: None (occurrence: None)
  Receive Date: 20101028
  Receipt Date: 20101021
  Transmission Date: 20110411
  Serious: Yes (Life-Threatening, Hospitalization)
  Sender: FDA-Public Use
  Company Number: B0665705A

PATIENT
  Age: 8 Year
  Sex: Male

DRUGS (3)
  1. ATRIANCE [Suspect]
     Route: 065
     Dates: start: 20100501, end: 20100701
  2. CYTARABINE [Concomitant]
     Dates: start: 20100501, end: 20100601
  3. CYCLOPHOSPHAMIDE [Concomitant]
     Route: 065
     Dates: start: 20100501, end: 20100701

REACTIONS (6)
  - BONE MARROW TRANSPLANT [None]
  - CARDIOMYOPATHY [None]
  - CARDIOTOXICITY [None]
  - EJECTION FRACTION DECREASED [None]
  - LEFT VENTRICULAR FAILURE [None]
  - PULMONARY OEDEMA [None]
